FAERS Safety Report 7989744-2 (Version None)
Quarter: 2011Q4

REPORT INFORMATION
  Report Type: 
  Country: None (occurrence: None)
  Receive Date: 20111219
  Receipt Date: 20111206
  Transmission Date: 20120403
  Serious: Yes (Hospitalization, Other)
  Sender: FDA-Public Use
  Company Number: US-AMGEN-USASP2011007812

PATIENT
  Age: 59 Year
  Sex: Male
  Weight: 96 kg

DRUGS (13)
  1. PLAVIX [Concomitant]
     Dosage: 75 MG, QD
  2. ASPIRIN [Concomitant]
     Dosage: 3000 MG, Q12H
  3. TOPROL-XL [Concomitant]
     Dosage: 50 MG, PRN
     Route: 048
  4. LIPITOR [Concomitant]
     Dosage: 80 MG, QD
     Route: 048
  5. IBUPROFEN [Concomitant]
     Dosage: 600 MG, Q8H
  6. POTASSIUM PHOSPHATES [Concomitant]
     Dosage: 2500 MG, Q12H
     Route: 048
  7. COUMADIN [Concomitant]
     Dosage: UNK
  8. ENBREL [Suspect]
     Indication: PRODUCT USED FOR UNKNOWN INDICATION
     Dosage: 50 MG, QWK
     Dates: start: 20030801
  9. NITROSTAT [Concomitant]
     Dosage: 1 UNK, Q5MIN
     Route: 060
  10. NEXIUM [Concomitant]
     Dosage: 40 MG, QD
  11. ASPIRIN [Concomitant]
     Dosage: 81 MG, QD
  12. NEURONTIN [Concomitant]
  13. ARTHROTEC [Concomitant]
     Indication: PAIN
     Dosage: 25 MG, Q12H

REACTIONS (54)
  - DYSPNOEA [None]
  - CHEST PAIN [None]
  - GENERAL PHYSICAL HEALTH DETERIORATION [None]
  - PARAESTHESIA [None]
  - CORONARY ARTERY DISEASE [None]
  - PNEUMOTHORAX [None]
  - PULMONARY EMBOLISM [None]
  - GASTROOESOPHAGEAL REFLUX DISEASE [None]
  - CATARACT [None]
  - PAIN [None]
  - TENDERNESS [None]
  - MYALGIA [None]
  - PATHOLOGICAL FRACTURE [None]
  - MUSCULOSKELETAL CHEST PAIN [None]
  - INTERVERTEBRAL DISC DEGENERATION [None]
  - ANEURYSM [None]
  - HIP DEFORMITY [None]
  - SPINAL OSTEOARTHRITIS [None]
  - ACUTE CORONARY SYNDROME [None]
  - COSTOCHONDRITIS [None]
  - HYPERLIPIDAEMIA [None]
  - CONTUSION [None]
  - NAUSEA [None]
  - MOBILITY DECREASED [None]
  - ASTHENIA [None]
  - ACUTE SINUSITIS [None]
  - STRESS FRACTURE [None]
  - SPINAL COLUMN STENOSIS [None]
  - TROPONIN INCREASED [None]
  - HYPERCHOLESTEROLAEMIA [None]
  - HEART RATE IRREGULAR [None]
  - GAIT DISTURBANCE [None]
  - DIARRHOEA [None]
  - PLEURISY [None]
  - HYPERTENSION [None]
  - ANAEMIA [None]
  - HAEMORRHAGE [None]
  - ARTHROPATHY [None]
  - VISION BLURRED [None]
  - CARDIAC FAILURE [None]
  - ANGINA UNSTABLE [None]
  - LYMPHOMA [None]
  - WHITE BLOOD CELL COUNT DECREASED [None]
  - ANKYLOSING SPONDYLITIS [None]
  - OSTEOPENIA [None]
  - CONDITION AGGRAVATED [None]
  - ACUTE MYOCARDIAL INFARCTION [None]
  - RADICULITIS [None]
  - PNEUMONIA [None]
  - HYPOPHOSPHATAEMIC RICKETS [None]
  - MARROW HYPERPLASIA [None]
  - COMA SCALE ABNORMAL [None]
  - BLOOD ALKALINE PHOSPHATASE INCREASED [None]
  - PANCYTOPENIA [None]
